FAERS Safety Report 8855154 (Version 2)
Quarter: 2014Q2

REPORT INFORMATION
  Report Type: Spontaneous
  Country: FR (occurrence: FR)
  Receive Date: 20121023
  Receipt Date: 20131018
  Transmission Date: 20141212
  Serious: Yes (Hospitalization)
  Sender: FDA-Public Use
  Company Number: FR-PFIZER INC-2012258554

PATIENT
  Age: 30 Year
  Sex: Female

DRUGS (6)
  1. SOLU-MEDROL [Suspect]
     Dosage: 1 UNK, UNK
     Route: 030
     Dates: start: 20110703, end: 20110703
  2. ZECLAR [Suspect]
     Indication: ODYNOPHAGIA
     Dosage: 500 MG, 2X/DAY
     Route: 048
     Dates: start: 20110702, end: 20110707
  3. CLARITYNE [Suspect]
     Dosage: UNK
     Route: 048
     Dates: start: 20110702
  4. SOLUPRED [Suspect]
     Dosage: UNK
     Route: 048
     Dates: start: 20110704
  5. MONURIL [Suspect]
     Indication: CYSTITIS
     Dosage: 3 G, SINGLE
     Route: 048
     Dates: start: 20110704, end: 20110704
  6. DAFALGAN CODEINE [Suspect]
     Indication: PYREXIA
     Dosage: UNK
     Route: 048
     Dates: start: 20110704

REACTIONS (4)
  - Rash maculo-papular [Recovered/Resolved]
  - Lip oedema [Recovered/Resolved]
  - Gingival erosion [Unknown]
  - Cheilitis [Unknown]
